FAERS Safety Report 6249785-2 (Version None)
Quarter: 2009Q2

REPORT INFORMATION
  Report Type: 
  Country: None (occurrence: None)
  Receive Date: 20090629
  Receipt Date: 20090624
  Transmission Date: 20091009
  Serious: Yes (Other)
  Sender: FDA-Public Use
  Company Number: JP-ELI_LILLY_AND_COMPANY-JP200906006157

PATIENT
  Age: 65 Year
  Sex: Female

DRUGS (4)
  1. GEMZAR [Suspect]
     Indication: PANCREATIC CARCINOMA NON-RESECTABLE
     Dosage: 800 MG, OTHER
     Route: 042
     Dates: start: 20061101
  2. GEMZAR [Suspect]
     Dosage: 600 MG, OTHER
     Route: 042
     Dates: start: 20061201, end: 20061201
  3. GEMZAR [Suspect]
     Dosage: 1000 MG, OTHER
     Route: 042
  4. TS 1 /JPN/ [Concomitant]
     Indication: METASTASES TO PERITONEUM
     Dosage: UNK, UNK
     Route: 048
     Dates: start: 20080101, end: 20080101

REACTIONS (4)
  - INTESTINAL OBSTRUCTION [None]
  - METASTASES TO PERITONEUM [None]
  - RASH [None]
  - WHITE BLOOD CELL COUNT DECREASED [None]
